FAERS Safety Report 9740053 (Version 1)
Quarter: 2013Q4

REPORT INFORMATION
  Report Type: Spontaneous
  Country: FR (occurrence: FR)
  Receive Date: 20131209
  Receipt Date: 20131209
  Transmission Date: 20140711
  Serious: Yes (Hospitalization)
  Sender: FDA-Public Use
  Company Number: FR-TEVA-447863ISR

PATIENT
  Age: 20 Year
  Sex: Female

DRUGS (1)
  1. LEELOO 0.1 MG/0.02 MG [Suspect]
     Route: 048
     Dates: start: 2012, end: 20130315

REACTIONS (4)
  - Transverse sinus thrombosis [Recovered/Resolved]
  - Eye pain [Recovered/Resolved]
  - Photophobia [Recovered/Resolved]
  - Headache [Recovered/Resolved]
